FAERS Safety Report 10058205 (Version 1)
Quarter: 2014Q2

REPORT INFORMATION
  Report Type: Spontaneous
  Country: US (occurrence: None)
  Receive Date: 20140403
  Receipt Date: 20140403
  Transmission Date: 20141212
  Serious: Yes (Other)
  Sender: FDA-Public Use
  Company Number: None

PATIENT
  Age: 71 Year
  Sex: Female
  Weight: 54.43 kg

DRUGS (9)
  1. ACYCLOVIR [Suspect]
     Indication: ORAL HERPES
     Dosage: 1 PILL
     Route: 048
     Dates: start: 20140310, end: 20140312
  2. ACYCLOVIR [Suspect]
     Indication: ORAL HERPES
     Dosage: 1 PILL
     Route: 048
     Dates: start: 20140310, end: 20140312
  3. LEVOXYL [Concomitant]
  4. FISH OIL [Concomitant]
  5. D3 [Concomitant]
  6. CALCIUM [Concomitant]
  7. CRANBERRY [Concomitant]
  8. PROBIOTICS [Concomitant]
  9. LIV 52 [Concomitant]

REACTIONS (2)
  - Rash pruritic [None]
  - Rash erythematous [None]
